FAERS Safety Report 19303379 (Version 1)
Quarter: 2021Q2

REPORT INFORMATION
  Report Type: Spontaneous
  Country: AT (occurrence: AT)
  Receive Date: 20210525
  Receipt Date: 20210525
  Transmission Date: 20210717
  Serious: Yes (Hospitalization)
  Sender: FDA-Public Use
  Company Number: AT-ASTRAZENECA-2021A427262

PATIENT
  Age: 26282 Day
  Sex: Female
  Weight: 79 kg

DRUGS (3)
  1. URIVESC [Concomitant]
     Active Substance: TROSPIUM CHLORIDE
     Dosage: 60.0MG UNKNOWN
     Dates: start: 20210319
  2. IMFINZI [Suspect]
     Active Substance: DURVALUMAB
     Indication: NON-SMALL CELL LUNG CANCER STAGE IIIA
     Route: 042
  3. APREDNISLON [Concomitant]
     Active Substance: PREDNISOLONE
     Dosage: 75.0MG UNKNOWN
     Dates: start: 20210402

REACTIONS (3)
  - Muscle disorder [Recovered/Resolved]
  - Blood creatine phosphokinase increased [Recovered/Resolved]
  - Urinary incontinence [Not Recovered/Not Resolved]

NARRATIVE: CASE EVENT DATE: 20210318
